FAERS Safety Report 13335743 (Version 1)
Quarter: 2017Q1

REPORT INFORMATION
  Report Type: Spontaneous
  Country: US (occurrence: US)
  Receive Date: 20170315
  Receipt Date: 20170315
  Transmission Date: 20170428
  Serious: No
  Sender: FDA-Public Use
  Company Number: US-TEVA-709137USA

PATIENT
  Age: 58 Year
  Sex: Female
  Weight: 79.36 kg

DRUGS (1)
  1. CETIRIZINE W/PSEUDOEPHEDRINE [Suspect]
     Active Substance: CETIRIZINE HYDROCHLORIDE\PSEUDOEPHEDRINE HYDROCHLORIDE
     Indication: SINUS CONGESTION
     Dosage: 1 DF= 5 MG CETIRIZINE HYDROCHLORIDE + 120 MG PSEUDOEPHEDRINE HYDROCHLORIDE
     Route: 048
     Dates: start: 20160926, end: 20160927

REACTIONS (3)
  - Flushing [Recovered/Resolved]
  - Oropharyngeal pain [Recovered/Resolved]
  - Dizziness [Recovered/Resolved]

NARRATIVE: CASE EVENT DATE: 20160926
